FAERS Safety Report 19471969 (Version 1)
Quarter: 2021Q2

REPORT INFORMATION
  Report Type: Spontaneous
  Country: IN (occurrence: IN)
  Receive Date: 20210629
  Receipt Date: 20210629
  Transmission Date: 20210717
  Serious: Yes (Death, Hospitalization)
  Sender: FDA-Public Use
  Company Number: IN-TILLOMEDPR-2021-EPL-002078

PATIENT

DRUGS (6)
  1. INSULIN [Concomitant]
     Active Substance: INSULIN NOS
  2. MOFILET [Suspect]
     Active Substance: MYCOPHENOLATE MOFETIL
     Indication: RENAL TRANSPLANT
     Dosage: 500 MILLIGRAM, MORN + EVE
     Route: 048
     Dates: start: 20210101, end: 20210424
  3. ARKAMIN [Concomitant]
     Indication: BLOOD PRESSURE MEASUREMENT
  4. PEDNISOL [Concomitant]
     Indication: INFECTION
  5. VINGRAF [Suspect]
     Active Substance: TACROLIMUS
     Dosage: 0.5 MILLIGRAM, MORN
     Route: 048
     Dates: start: 20210101, end: 20210522
  6. VINGRAF [Suspect]
     Active Substance: TACROLIMUS
     Indication: RENAL TRANSPLANT
     Dosage: 1 MILLIGRAM, MORN + EVE
     Route: 048
     Dates: start: 20210101, end: 20210522

REACTIONS (2)
  - COVID-19 [Unknown]
  - Haematemesis [Fatal]
